FAERS Safety Report 6687601-5 (Version None)
Quarter: 2010Q2

REPORT INFORMATION
  Report Type: 
  Country: None (occurrence: None)
  Receive Date: 20100416
  Receipt Date: 20100416
  Transmission Date: 20101027
  Serious: Yes (Hospitalization)
  Sender: FDA-Public Use
  Company Number: None

PATIENT
  Sex: Female
  Weight: 57.4707 kg

DRUGS (2)
  1. DOXORUBICIN HCL [Suspect]
     Indication: NON-HODGKIN'S LYMPHOMA
     Dosage: 80 MG EVERY 21 DAY CYCLE IV BOLUS
     Route: 040
     Dates: start: 20100316, end: 20100406
  2. VINCRISTINE [Suspect]
     Indication: NON-HODGKIN'S LYMPHOMA
     Dosage: 2 MG EVERY 21 DAY CYCLE IV BOLUS
     Route: 040
     Dates: start: 20100316, end: 20100406

REACTIONS (3)
  - DIZZINESS [None]
  - RECTAL HAEMORRHAGE [None]
  - SYNCOPE [None]
